FAERS Safety Report 13538853 (Version 1)
Quarter: 2017Q2

REPORT INFORMATION
  Report Type: Spontaneous
  Country: US (occurrence: US)
  Receive Date: 20170511
  Receipt Date: 20170511
  Transmission Date: 20170830
  Serious: No
  Sender: FDA-Public Use
  Company Number: None

PATIENT
  Age: 65 Year
  Sex: Male
  Weight: 84.15 kg

DRUGS (5)
  1. ONE DAILY MULTIVITAMIN/MINERAL SUPPLEMENT [Concomitant]
  2. FISH OIL [Concomitant]
     Active Substance: FISH OIL
  3. CELECOXIB. [Suspect]
     Active Substance: CELECOXIB
     Indication: CARTILAGE INJURY
     Dosage: ?          QUANTITY:1 CAPSULE(S);?
     Route: 048
     Dates: start: 20170505, end: 20170510
  4. ASPIRIN. [Concomitant]
     Active Substance: ASPIRIN
  5. VITAMIN D3 [Concomitant]
     Active Substance: CHOLECALCIFEROL

REACTIONS (5)
  - Pain [None]
  - Nightmare [None]
  - Lethargy [None]
  - Drug ineffective [None]
  - Palpitations [None]

NARRATIVE: CASE EVENT DATE: 20170509
